FAERS Safety Report 4480476-4 (Version None)
Quarter: 2004Q4

REPORT INFORMATION
  Report Type: 
  Country: None (occurrence: None)
  Receive Date: 20041018
  Receipt Date: 20040930
  Transmission Date: 20050328
  Serious: Yes (Hospitalization)
  Sender: FDA-Public Use
  Company Number: 201359

PATIENT
  Sex: Female

DRUGS (24)
  1. AVONEX [Suspect]
     Indication: MULTIPLE SCLEROSIS
     Dosage: 30 MCG QW IM
     Route: 030
     Dates: start: 20010811, end: 20031001
  2. AVONEX [Suspect]
     Indication: MULTIPLE SCLEROSIS
     Dosage: 30 MCG QW IM
     Route: 030
     Dates: start: 20031001
  3. AMBIEN [Concomitant]
  4. AMITRIPTYLINE HCL [Concomitant]
  5. ASPIRIN [Concomitant]
  6. ATARAX [Concomitant]
  7. BACLOFEN [Concomitant]
  8. CARBIDOPA AND LEVODOPA [Concomitant]
  9. CRANBERRY TABS [Concomitant]
  10. DETROL [Concomitant]
  11. DILANTIN [Concomitant]
  12. INDERAL [Concomitant]
  13. KLONOPIN [Concomitant]
  14. LEVAQUIN [Concomitant]
  15. LEXAPRO [Concomitant]
  16. LIDEX [Concomitant]
  17. LORTAB [Concomitant]
  18. MIRALAX [Concomitant]
  19. NEURONTIN [Concomitant]
  20. PERSANTIN INJ [Concomitant]
  21. SENNA [Concomitant]
  22. THERAGRAN [Concomitant]
  23. FUROSEMIDE [Concomitant]
  24. TRILEPTAL [Concomitant]

REACTIONS (22)
  - ANXIETY [None]
  - ASTHENIA [None]
  - BLOOD ALBUMIN DECREASED [None]
  - BLOOD ALKALINE PHOSPHATASE INCREASED [None]
  - BLOOD LACTATE DEHYDROGENASE INCREASED [None]
  - CARDIAC FAILURE CONGESTIVE [None]
  - CHEST PAIN [None]
  - CONSTIPATION [None]
  - DEPRESSION [None]
  - FATIGUE [None]
  - GASTRIC ULCER [None]
  - HAEMATOCRIT DECREASED [None]
  - HIATUS HERNIA [None]
  - HYPERTENSION [None]
  - HYPOXIA [None]
  - INTESTINAL OBSTRUCTION [None]
  - MULTIPLE SCLEROSIS [None]
  - MUSCLE SPASMS [None]
  - NERVOUSNESS [None]
  - OESOPHAGITIS [None]
  - PLEURAL EFFUSION [None]
  - PNEUMONIA [None]
